FAERS Safety Report 10102064 (Version 1)
Quarter: 2014Q2

REPORT INFORMATION
  Report Type: Spontaneous
  Country: NZ (occurrence: NZ)
  Receive Date: 20140424
  Receipt Date: 20140424
  Transmission Date: 20141212
  Serious: Yes (Disabling)
  Sender: FDA-Public Use
  Company Number: NZ-MERCK-1404NZL012117

PATIENT
  Age: 53 Year
  Sex: Female

DRUGS (3)
  1. SIMVASTATIN [Suspect]
     Dosage: UNK
     Route: 048
     Dates: end: 2007
  2. SIMVASTATIN [Suspect]
     Dosage: RECENTLY DOUBLED DOSE
     Route: 048
     Dates: start: 2007, end: 20071012
  3. SIMVASTATIN [Suspect]
     Dosage: UNK
     Route: 048
     Dates: start: 20071023

REACTIONS (2)
  - Gait disturbance [Recovered/Resolved]
  - Dizziness [Recovered/Resolved]
